FAERS Safety Report 7762564-X (Version None)
Quarter: 2011Q3

REPORT INFORMATION
  Report Type: 
  Country: None (occurrence: None)
  Receive Date: 20110920
  Receipt Date: 20110916
  Transmission Date: 20111222
  Serious: No
  Sender: FDA-Public Use
  Company Number: US-PFIZER INC-2011203461

PATIENT
  Age: 78 Year
  Sex: Female

DRUGS (1)
  1. ADVIL LIQUI-GELS [Suspect]
     Indication: HEADACHE
     Dosage: UNK

REACTIONS (4)
  - HALLUCINATION [None]
  - NONSPECIFIC REACTION [None]
  - FEAR [None]
  - HEADACHE [None]
